FAERS Safety Report 22077485 (Version 1)
Quarter: 2023Q1

REPORT INFORMATION
  Report Type: Report from Study
  Country: CN (occurrence: CN)
  Receive Date: 20230309
  Receipt Date: 20230309
  Transmission Date: 20230418
  Serious: Yes (Hospitalization)
  Sender: FDA-Public Use
  Company Number: CN-TAKEDA-2023TUS024143

PATIENT
  Age: 59 Year
  Sex: Male
  Weight: 67 kg

DRUGS (5)
  1. VEDOLIZUMAB [Suspect]
     Active Substance: VEDOLIZUMAB
     Indication: Colitis ulcerative
     Dosage: 300 MILLIGRAM
     Route: 042
     Dates: start: 20221102
  2. Compound glutamine [Concomitant]
     Indication: Inflammatory bowel disease
     Dosage: 0.4 GRAM, TID
     Route: 048
     Dates: start: 2019
  3. Live combined bacillus subtilis and enterococcus faecium [Concomitant]
     Indication: Inflammatory bowel disease
     Dosage: 500 MILLIGRAM, TID
     Route: 048
     Dates: start: 2019
  4. MESALAMINE [Concomitant]
     Active Substance: MESALAMINE
     Indication: Inflammatory bowel disease
     Dosage: 4 GRAM, QD
     Route: 048
     Dates: start: 2019
  5. MESALAMINE [Concomitant]
     Active Substance: MESALAMINE
     Dosage: UNK
     Dates: start: 2019

REACTIONS (1)
  - Lower limb fracture [Not Recovered/Not Resolved]

NARRATIVE: CASE EVENT DATE: 20230130
